FAERS Safety Report 8543571-6 (Version None)
Quarter: 2012Q3

REPORT INFORMATION
  Report Type: 
  Country: None (occurrence: None)
  Receive Date: 20120727
  Receipt Date: 20120720
  Transmission Date: 20120928
  Serious: Yes (Hospitalization)
  Sender: FDA-Public Use
  Company Number: FR-GENZYME-THYM-1003348

PATIENT
  Age: 49 Year
  Sex: Male

DRUGS (7)
  1. PREDNISOLONE [Concomitant]
     Indication: PRODUCT USED FOR UNKNOWN INDICATION
     Dosage: 20 MG, QD
     Route: 065
     Dates: start: 20120208
  2. PROGRAF [Concomitant]
     Indication: PRODUCT USED FOR UNKNOWN INDICATION
     Dosage: 5 MG, BID
     Route: 065
     Dates: start: 20120208
  3. THYMOGLOBULIN [Suspect]
     Indication: PRODUCT USED FOR UNKNOWN INDICATION
     Dosage: UNK
     Route: 065
     Dates: start: 20120208, end: 20120211
  4. CELLCEPT [Concomitant]
     Indication: PRODUCT USED FOR UNKNOWN INDICATION
     Dosage: 750 MG, BID
     Route: 065
     Dates: start: 20120208
  5. NEXIUM [Concomitant]
     Indication: PRODUCT USED FOR UNKNOWN INDICATION
     Dosage: 40 MG, QD
     Route: 065
     Dates: start: 20120208
  6. BACTRIM [Concomitant]
     Indication: PRODUCT USED FOR UNKNOWN INDICATION
     Dosage: 2 PILLS/W
     Route: 065
     Dates: start: 20120208
  7. BACTRIM [Concomitant]
     Dosage: 2 PILLS/W
     Route: 065
     Dates: start: 20120201

REACTIONS (4)
  - PYREXIA [None]
  - ARTHRALGIA [None]
  - RENAL FAILURE ACUTE [None]
  - SERUM SICKNESS [None]
